FAERS Safety Report 8660489 (Version 2)
Quarter: 2013Q4

REPORT INFORMATION
  Report Type: Spontaneous
  Country: US (occurrence: US)
  Receive Date: 20120711
  Receipt Date: 20131106
  Transmission Date: 20140711
  Serious: Yes (Death)
  Sender: FDA-Public Use
  Company Number: US-009507513-1207USA000808

PATIENT
  Age: 55 Year
  Sex: Male

DRUGS (8)
  1. VICTRELIS [Suspect]
     Indication: HEPATITIS C
     Dosage: 800 MG, TID
     Route: 048
     Dates: start: 20120517
  2. REBETOL [Suspect]
     Dosage: UNK
  3. PEGASYS [Suspect]
     Indication: HEPATITIS C
  4. INSULIN [Concomitant]
  5. GABAPENTIN [Concomitant]
  6. COMPAZINE [Concomitant]
  7. IMODIUM [Concomitant]
  8. CELEXA [Concomitant]

REACTIONS (2)
  - Death [Fatal]
  - Blood glucose increased [Unknown]
